FAERS Safety Report 5583758-8 (Version None)
Quarter: 2008Q1

REPORT INFORMATION
  Report Type: 
  Country: None (occurrence: None)
  Receive Date: 20080103
  Receipt Date: 20080103
  Transmission Date: 20080703
  Serious: Yes (Hospitalization)
  Sender: FDA-Public Use
  Company Number: None

PATIENT
  Age: 60 Year
  Sex: Male
  Weight: 74.8435 kg

DRUGS (14)
  1. CISPLATIN [Suspect]
     Dosage: 30MG/M2
     Dates: start: 20071002
  2. ERBITUX [Suspect]
     Dosage: 250MG/M2
     Dates: start: 20071002
  3. RT [Suspect]
     Dates: start: 20071208
  4. ZOFRAN [Concomitant]
  5. COMPAZINE [Concomitant]
  6. ATIVAN [Concomitant]
  7. TEGRETOL [Concomitant]
  8. ZANTAC [Concomitant]
  9. ACYCLOVIR [Concomitant]
  10. CITALOPRAM [Concomitant]
  11. LEVOTHYROXINE SODIUM [Concomitant]
  12. FENT PATCH [Concomitant]
  13. OXYCODONE [Concomitant]
  14. SENNA [Concomitant]

REACTIONS (2)
  - MUCOSAL INFLAMMATION [None]
  - ORAL INTAKE REDUCED [None]
